FAERS Safety Report 23379948 (Version 1)
Quarter: 2024Q1

REPORT INFORMATION
  Report Type: Spontaneous
  Country: JP (occurrence: JP)
  Receive Date: 20240109
  Receipt Date: 20240109
  Transmission Date: 20240410
  Serious: Yes (Hospitalization)
  Sender: FDA-Public Use
  Company Number: JP-STRIDES ARCOLAB LIMITED-2024SP000114

PATIENT
  Age: 68 Year
  Sex: Female

DRUGS (3)
  1. METHOTREXATE [Suspect]
     Active Substance: METHOTREXATE
     Indication: Rheumatoid arthritis
     Dosage: 6 MILLIGRAM, WEEKLY
     Route: 065
  2. PREDNISOLONE [Suspect]
     Active Substance: PREDNISOLONE
     Indication: Pneumocystis jirovecii pneumonia
     Dosage: 80 MILLIGRAM DAILY
     Route: 065
  3. ACTARIT [Concomitant]
     Active Substance: ACTARIT
     Indication: Rheumatoid arthritis
     Dosage: 100 MILLIGRAM (DAILY)
     Route: 065

REACTIONS (6)
  - Immune reconstitution inflammatory syndrome [Recovered/Resolved]
  - Pancytopenia [Recovered/Resolved]
  - Pneumonia bacterial [Recovered/Resolved]
  - Pneumocystis jirovecii pneumonia [Recovered/Resolved]
  - Cytomegalovirus colitis [Unknown]
  - Condition aggravated [Recovered/Resolved]
